FAERS Safety Report 14329651 (Version 1)
Quarter: 2017Q4

REPORT INFORMATION
  Report Type: Spontaneous
  Country: FR (occurrence: FR)
  Receive Date: 20171227
  Receipt Date: 20171227
  Transmission Date: 20180321
  Serious: Yes (Life-Threatening, Hospitalization, Disabling)
  Sender: FDA-Public Use
  Company Number: FR-TEVA-2017-FR-839175

PATIENT
  Age: 72 Year
  Sex: Male
  Weight: 71 kg

DRUGS (7)
  1. AZOPT [Concomitant]
     Active Substance: BRINZOLAMIDE
     Indication: GLAUCOMA
     Route: 047
  2. FLUVASTATIN [Suspect]
     Active Substance: FLUVASTATIN SODIUM
     Indication: HYPERCHOLESTEROLAEMIA
     Route: 048
     Dates: start: 20160526, end: 20160717
  3. TRINITRINE [Concomitant]
     Active Substance: NITROGLYCERIN
     Route: 060
  4. GANFORT [Concomitant]
     Active Substance: BIMATOPROST\TIMOLOL
     Route: 047
  5. LIPANTHYL [Suspect]
     Active Substance: FENOFIBRATE
     Indication: HYPERCHOLESTEROLAEMIA
     Route: 065
     Dates: start: 20150205
  6. KARDEGIC [Concomitant]
     Active Substance: ASPIRIN DL-LYSINE
     Route: 048
  7. FLUVASTATIN [Suspect]
     Active Substance: FLUVASTATIN SODIUM
     Indication: HYPERCHOLESTEROLAEMIA
     Route: 065
     Dates: start: 20160421, end: 201605

REACTIONS (6)
  - Liver disorder [Unknown]
  - Septic shock [Recovered/Resolved]
  - Lung infection [Unknown]
  - Renal failure [Unknown]
  - Ureteral disorder [Unknown]
  - Pancreatitis acute [Recovered/Resolved with Sequelae]

NARRATIVE: CASE EVENT DATE: 2016
